FAERS Safety Report 11843436 (Version 1)
Quarter: 2015Q4

REPORT INFORMATION
  Report Type: Spontaneous
  Country: FR (occurrence: FR)
  Receive Date: 20151217
  Receipt Date: 20151217
  Transmission Date: 20160305
  Serious: Yes (Hospitalization)
  Sender: FDA-Public Use
  Company Number: FR-ROCHE-1678216

PATIENT
  Sex: Female

DRUGS (6)
  1. XOLAIR [Suspect]
     Active Substance: OMALIZUMAB
     Indication: URTICARIA
     Dosage: ONCE/SINGLE
     Route: 042
     Dates: start: 20150706, end: 20150706
  2. LEVOTHYROX [Concomitant]
     Active Substance: LEVOTHYROXINE
     Indication: HYPOTHYROIDISM
  3. XOLAIR [Suspect]
     Active Substance: OMALIZUMAB
     Route: 042
     Dates: start: 20150804
  4. PARACETAMOL [Concomitant]
     Active Substance: ACETAMINOPHEN
  5. KESTIN [Concomitant]
     Active Substance: EBASTINE
     Indication: PRURITUS
  6. XOLAIR [Suspect]
     Active Substance: OMALIZUMAB
     Route: 042
     Dates: start: 20150804

REACTIONS (1)
  - Headache [Recovered/Resolved]
